FAERS Safety Report 18207354 (Version 1)
Quarter: 2020Q3

REPORT INFORMATION
  Report Type: Spontaneous
  Country: US (occurrence: US)
  Receive Date: 20200828
  Receipt Date: 20200828
  Transmission Date: 20201103
  Serious: No
  Sender: FDA-Public Use
  Company Number: None

PATIENT
  Age: 75 Year
  Sex: Male
  Weight: 103.4 kg

DRUGS (14)
  1. AMLODIPINE BESYLATE. [Concomitant]
     Active Substance: AMLODIPINE BESYLATE
  2. ATORVASTATIN CALCIUM. [Concomitant]
     Active Substance: ATORVASTATIN CALCIUM
  3. LEVETIRACETAM. [Concomitant]
     Active Substance: LEVETIRACETAM
  4. MULTIVITAMIN ADULT [Concomitant]
  5. VIMPAT [Concomitant]
     Active Substance: LACOSAMIDE
  6. LINAGLIPTIN [Concomitant]
     Active Substance: LINAGLIPTIN
  7. JANUVIA [Concomitant]
     Active Substance: SITAGLIPTIN PHOSPHATE
  8. LANSOPRAZOLE. [Concomitant]
     Active Substance: LANSOPRAZOLE
  9. LANTUS [Concomitant]
     Active Substance: INSULIN GLARGINE
  10. OLMESARTAN MEDOXOMIL?HCTZ [Concomitant]
  11. FLOMAX [Concomitant]
     Active Substance: TAMSULOSIN HYDROCHLORIDE
  12. METOPROLOL TARTRATE. [Concomitant]
     Active Substance: METOPROLOL TARTRATE
  13. TEMOZOLOMIDE. [Suspect]
     Active Substance: TEMOZOLOMIDE
     Indication: BRAIN NEOPLASM MALIGNANT
     Dosage: ?          OTHER FREQUENCY:MON?FRIDAY;?
     Route: 048
     Dates: start: 20200409, end: 20200828
  14. LACOSAMIDE. [Concomitant]
     Active Substance: LACOSAMIDE

REACTIONS (1)
  - Loss of consciousness [None]

NARRATIVE: CASE EVENT DATE: 20200828
